FAERS Safety Report 15264939 (Version 1)
Quarter: 2018Q3

REPORT INFORMATION
  Report Type: Spontaneous
  Country: US (occurrence: US)
  Receive Date: 20180723
  Receipt Date: 20180723
  Transmission Date: 20181010
  Serious: Yes (Hospitalization)
  Sender: FDA-Public Use
  Company Number: None

PATIENT
  Age: 54 Year
  Sex: Female

DRUGS (18)
  1. SIMVASTATIN. [Concomitant]
     Active Substance: SIMVASTATIN
  2. TRAZODONE [Concomitant]
     Active Substance: TRAZODONE HYDROCHLORIDE
  3. LEVOTHYROXINE. [Concomitant]
     Active Substance: LEVOTHYROXINE
  4. MONTELUKAST [Concomitant]
     Active Substance: MONTELUKAST SODIUM
  5. LYRICA [Concomitant]
     Active Substance: PREGABALIN
  6. PROGESTERONE. [Concomitant]
     Active Substance: PROGESTERONE
  7. OMEPRAZOLE. [Concomitant]
     Active Substance: OMEPRAZOLE
  8. METOPROL SUC [Concomitant]
  9. VIBERZI [Concomitant]
     Active Substance: ELUXADOLINE
  10. TERBINAFINE. [Concomitant]
     Active Substance: TERBINAFINE
  11. ENBREL [Suspect]
     Active Substance: ETANERCEPT
     Indication: RHEUMATOID ARTHRITIS
     Route: 058
  12. DULOXETINE. [Concomitant]
     Active Substance: DULOXETINE
  13. NORTRIPTYLINE [Concomitant]
     Active Substance: NORTRIPTYLINE
  14. RANEXA [Concomitant]
     Active Substance: RANOLAZINE
  15. ESTRADIOL. [Concomitant]
     Active Substance: ESTRADIOL
  16. CYCLOBENZAPRINE. [Concomitant]
     Active Substance: CYCLOBENZAPRINE
  17. DULOXETINE. [Concomitant]
     Active Substance: DULOXETINE
  18. KETACONAZOLE [Concomitant]
     Active Substance: KETOCONAZOLE

REACTIONS (2)
  - Drug dose omission [None]
  - Hip arthroplasty [None]

NARRATIVE: CASE EVENT DATE: 20180504
